FAERS Safety Report 5598738-6 (Version None)
Quarter: 2007Q4

REPORT INFORMATION
  Report Type: 
  Country: None (occurrence: None)
  Receive Date: 20071226
  Receipt Date: 20071031
  Transmission Date: 20080405
  Serious: No
  Sender: FDA-Public Use
  Company Number: 2007PV033656

PATIENT
  Age: 59 Year
  Sex: Male

DRUGS (8)
  1. SYMLIN [Suspect]
     Indication: TYPE 2 DIABETES MELLITUS
     Dosage: 120, 60 MCG, QD, SC
     Route: 058
     Dates: start: 20071030, end: 20071031
  2. SYMLIN [Suspect]
     Indication: TYPE 2 DIABETES MELLITUS
     Dosage: 120, 60 MCG, QD, SC
     Route: 058
     Dates: start: 20071031
  3. LANTUS [Concomitant]
  4. EXUBERA [Concomitant]
  5. PROTONIX [Concomitant]
  6. VYTORIN [Concomitant]
  7. TRAMADOL HCL [Concomitant]
  8. TYLENOL (CAPLET) [Concomitant]

REACTIONS (1)
  - NAUSEA [None]
